FAERS Safety Report 24719665 (Version 1)
Quarter: 2024Q4

REPORT INFORMATION
  Report Type: Spontaneous
  Country: US (occurrence: US)
  Receive Date: 20241211
  Receipt Date: 20241211
  Transmission Date: 20250115
  Serious: No
  Sender: ABBVIE
  Company Number: US-ABBVIE-6037192

PATIENT
  Age: 69 Year
  Sex: Male

DRUGS (3)
  1. CYCLOSPORINE [Suspect]
     Active Substance: CYCLOSPORINE
     Indication: Product used for unknown indication
     Route: 065
  2. DUPIXENT [Suspect]
     Active Substance: DUPILUMAB
     Indication: Dermatitis atopic
     Dosage: FORM STRENGTH:300MG/2ML FREQUENCY: ONCE
     Route: 058
     Dates: start: 20200211, end: 20200211
  3. DUPIXENT [Suspect]
     Active Substance: DUPILUMAB
     Indication: Dermatitis atopic
     Dosage: FORM STRENGTH:300MG/2ML FREQUENCY: ONCE
     Route: 058
     Dates: start: 20200228

REACTIONS (4)
  - Dyspnoea [Unknown]
  - Dermatitis atopic [Not Recovered/Not Resolved]
  - Therapeutic product effect incomplete [Unknown]
  - Injection site discharge [Unknown]

NARRATIVE: CASE EVENT DATE: 20200101
